FAERS Safety Report 25428808 (Version 4)
Quarter: 2025Q2

REPORT INFORMATION
  Report Type: Spontaneous
  Country: CA (occurrence: CA)
  Receive Date: 20250612
  Receipt Date: 20250626
  Transmission Date: 20250716
  Serious: Yes (Other)
  Sender: PFIZER
  Company Number: CA-PFIZER INC-202101218825

PATIENT
  Age: 48 Year
  Sex: Female

DRUGS (38)
  1. RUXIENCE [Suspect]
     Active Substance: RITUXIMAB-PVVR
     Indication: Rheumatoid arthritis
     Route: 042
     Dates: start: 20210220, end: 20210306
  2. RUXIENCE [Suspect]
     Active Substance: RITUXIMAB-PVVR
     Route: 042
     Dates: start: 20210306
  3. RUXIENCE [Suspect]
     Active Substance: RITUXIMAB-PVVR
     Route: 042
     Dates: start: 20220315, end: 20220329
  4. RUXIENCE [Suspect]
     Active Substance: RITUXIMAB-PVVR
     Route: 042
     Dates: start: 20220927
  5. RUXIENCE [Suspect]
     Active Substance: RITUXIMAB-PVVR
     Route: 042
     Dates: start: 20221012
  6. RUXIENCE [Suspect]
     Active Substance: RITUXIMAB-PVVR
     Route: 042
     Dates: start: 20230920
  7. RUXIENCE [Suspect]
     Active Substance: RITUXIMAB-PVVR
     Route: 042
     Dates: start: 20231005
  8. RUXIENCE [Suspect]
     Active Substance: RITUXIMAB-PVVR
     Route: 042
     Dates: start: 20240503
  9. RUXIENCE [Suspect]
     Active Substance: RITUXIMAB-PVVR
     Route: 042
     Dates: start: 20240518
  10. RUXIENCE [Suspect]
     Active Substance: RITUXIMAB-PVVR
     Route: 042
     Dates: start: 20241127
  11. RUXIENCE [Suspect]
     Active Substance: RITUXIMAB-PVVR
     Route: 042
     Dates: start: 20241209
  12. RUXIENCE [Suspect]
     Active Substance: RITUXIMAB-PVVR
     Route: 042
     Dates: start: 20250606
  13. ACETAMINOPHEN [Concomitant]
     Active Substance: ACETAMINOPHEN
     Indication: Premedication
     Dates: start: 20241127, end: 20241127
  14. ACETAMINOPHEN [Concomitant]
     Active Substance: ACETAMINOPHEN
     Dates: start: 20250606, end: 20250606
  15. ASPIRIN [Concomitant]
     Active Substance: ASPIRIN
  16. MINERALS\VITAMINS [Concomitant]
     Active Substance: MINERALS\VITAMINS
  17. CALCIUM CARBONATE\ERGOCALCIFEROL [Concomitant]
     Active Substance: CALCIUM CARBONATE\ERGOCALCIFEROL
  18. DIPHENHYDRAMINE [Concomitant]
     Active Substance: DIPHENHYDRAMINE
     Indication: Premedication
     Dates: start: 20241127, end: 20241127
  19. DIPHENHYDRAMINE [Concomitant]
     Active Substance: DIPHENHYDRAMINE
     Dates: start: 20250606, end: 20250606
  20. FOLIC ACID [Concomitant]
     Active Substance: FOLIC ACID
  21. GRAVOL [Concomitant]
     Active Substance: DIMENHYDRINATE
  22. HYDROMORPHONE [Concomitant]
     Active Substance: HYDROMORPHONE
  23. IMURAN [Concomitant]
     Active Substance: AZATHIOPRINE
  24. INSULIN NOS [Concomitant]
     Active Substance: INSULIN NOS
  25. LEVETIRACETAM [Concomitant]
     Active Substance: LEVETIRACETAM
  26. LIPITOR [Concomitant]
     Active Substance: ATORVASTATIN CALCIUM
     Indication: Blood cholesterol abnormal
     Dosage: 10 MG, 1X/DAY
     Route: 065
  27. LYRICA [Concomitant]
     Active Substance: PREGABALIN
     Dosage: 75 MG, 3X/DAY
     Route: 065
     Dates: start: 20190724
  28. METFORMIN [Concomitant]
     Active Substance: METFORMIN HYDROCHLORIDE
  29. METHYLPREDNISOLONE [Concomitant]
     Active Substance: METHYLPREDNISOLONE
     Indication: Premedication
     Dates: start: 20241127, end: 20241127
  30. METHYLPREDNISOLONE [Concomitant]
     Active Substance: METHYLPREDNISOLONE
     Dates: start: 20250606, end: 20250606
  31. MICARDIS [Concomitant]
     Active Substance: TELMISARTAN
  32. NORTRIPTYLINE [Concomitant]
     Active Substance: NORTRIPTYLINE
  33. NORVASC [Concomitant]
     Active Substance: AMLODIPINE BESYLATE
  34. PANTOPRAZOLE SODIUM [Concomitant]
     Active Substance: PANTOPRAZOLE SODIUM
  35. PREDNISONE [Concomitant]
     Active Substance: PREDNISONE
  36. REPAGLINIDE [Concomitant]
     Active Substance: REPAGLINIDE
  37. SYNTHROID [Concomitant]
     Active Substance: LEVOTHYROXINE SODIUM
  38. KETOTIFEN FUMARATE [Concomitant]
     Active Substance: KETOTIFEN FUMARATE
     Route: 047

REACTIONS (11)
  - White blood cell count decreased [Unknown]
  - Limb injury [Recovering/Resolving]
  - Gastroenteritis viral [Recovering/Resolving]
  - Hepatic enzyme increased [Recovering/Resolving]
  - Wound infection [Recovering/Resolving]
  - Blood pressure increased [Recovering/Resolving]
  - Blood glucose increased [Unknown]
  - Condition aggravated [Unknown]
  - Heart rate increased [Unknown]
  - Off label use [Unknown]
  - Intentional product use issue [Unknown]

NARRATIVE: CASE EVENT DATE: 20210101
